FAERS Safety Report 7442484-0 (Version None)
Quarter: 2011Q2

REPORT INFORMATION
  Report Type: 
  Country: None (occurrence: None)
  Receive Date: 20110420
  Receipt Date: 20110412
  Transmission Date: 20111010
  Serious: Yes (Death)
  Sender: FDA-Public Use
  Company Number: 2011S1000129

PATIENT
  Age: 1 Day
  Sex: Female

DRUGS (1)
  1. INOMAX [Suspect]
     Indication: PLEURAL EFFUSION
     Dosage: 20 PPM;CONT;INH
     Route: 055
     Dates: start: 20101203, end: 20101203

REACTIONS (1)
  - GENERAL PHYSICAL HEALTH DETERIORATION [None]
